FAERS Safety Report 21951123 (Version 2)
Quarter: 2023Q4

REPORT INFORMATION
  Report Type: Report from Study
  Country: CA (occurrence: CA)
  Receive Date: 20230203
  Receipt Date: 20231120
  Transmission Date: 20240110
  Serious: Yes (Hospitalization, Other)
  Sender: FDA-Public Use
  Company Number: CA-TAKEDA-2021TUS077124

PATIENT
  Age: 72 Year
  Sex: Female

DRUGS (27)
  1. HUMAN IMMUNOGLOBULIN G [Suspect]
     Active Substance: HUMAN IMMUNOGLOBULIN G
     Indication: Primary immunodeficiency syndrome
     Dosage: 6 GRAM, 1/WEEK
     Route: 058
     Dates: start: 20211125
  2. HUMAN IMMUNOGLOBULIN G [Suspect]
     Active Substance: HUMAN IMMUNOGLOBULIN G
     Dosage: 6 GRAM, 1/WEEK
     Route: 058
  3. HUMAN IMMUNOGLOBULIN G [Suspect]
     Active Substance: HUMAN IMMUNOGLOBULIN G
     Dosage: 6 GRAM, 1/WEEK
     Route: 050
  4. CANNABIS SATIVA SUBSP. INDICA TOP [Concomitant]
     Active Substance: CANNABIS SATIVA SUBSP. INDICA TOP
     Indication: Pain
     Dosage: 1 MILLILITER
     Route: 065
     Dates: start: 201609, end: 202101
  5. PROPRANOLOL [Concomitant]
     Active Substance: PROPRANOLOL HYDROCHLORIDE
     Indication: Migraine
     Dosage: 10 MILLIGRAM, BID
     Route: 065
     Dates: start: 20180723
  6. VENLAFAXINE [Concomitant]
     Active Substance: VENLAFAXINE HYDROCHLORIDE
     Indication: Depression
     Dosage: 187.5 MILLIGRAM, QD
     Route: 065
     Dates: start: 201211, end: 20190922
  7. VENLAFAXINE [Concomitant]
     Active Substance: VENLAFAXINE HYDROCHLORIDE
     Indication: Pain
  8. ZENHALE [Concomitant]
     Active Substance: FORMOTEROL FUMARATE\MOMETASONE FUROATE
     Indication: Asthma
     Dosage: UNK
     Route: 065
     Dates: start: 20181206
  9. ZENHALE [Concomitant]
     Active Substance: FORMOTEROL FUMARATE\MOMETASONE FUROATE
     Indication: Chronic obstructive pulmonary disease
  10. ZENHALE [Concomitant]
     Active Substance: FORMOTEROL FUMARATE\MOMETASONE FUROATE
     Indication: Bronchiectasis
  11. BOTOX [Concomitant]
     Active Substance: ONABOTULINUMTOXINA
     Indication: Migraine
     Route: 065
  12. LIDOCAINE [Concomitant]
     Active Substance: LIDOCAINE
     Indication: Fibromyalgia
     Dosage: UNK
     Route: 065
  13. LIDOCAINE [Concomitant]
     Active Substance: LIDOCAINE
     Indication: Neuropathy peripheral
  14. FLUTICASONE FUROATE [Concomitant]
     Active Substance: FLUTICASONE FUROATE
     Indication: Chronic sinusitis
     Dosage: UNK
     Route: 065
     Dates: start: 20140103
  15. CYCLOBENZAPRINE [Concomitant]
     Active Substance: CYCLOBENZAPRINE
     Indication: Muscle relaxant therapy
     Dosage: UNK
     Route: 065
     Dates: start: 201610
  16. LIDODAN [Concomitant]
     Indication: Groin pain
     Dosage: UNK UNK, TID
     Route: 065
     Dates: start: 20200922
  17. LIDODAN [Concomitant]
     Indication: Pelvic pain
  18. ALBUTEROL [Concomitant]
     Active Substance: ALBUTEROL
     Indication: Asthma
     Dosage: 100 MICROGRAM
     Route: 065
     Dates: start: 201701
  19. SANDOZ ONDANSETRON [Concomitant]
     Indication: Nausea
     Dosage: 8 MILLIGRAM, Q12H
     Route: 065
     Dates: start: 20190128
  20. MUPIROCIN [Concomitant]
     Active Substance: MUPIROCIN
     Indication: Sinusitis
     Dosage: UNK UNK, BID
     Route: 065
     Dates: start: 20140319
  21. BETAHISTINE [Concomitant]
     Active Substance: BETAHISTINE
     Indication: Vertigo
     Dosage: 16 MILLIGRAM, TID
     Route: 065
     Dates: start: 20191004
  22. VITAMIN B12 [Concomitant]
     Active Substance: CYANOCOBALAMIN
     Dosage: 1000 MICROGRAM, QD
     Route: 065
     Dates: start: 202106
  23. CALCIUM\CHOLECALCIFEROL\MAGNESIUM [Concomitant]
     Active Substance: CALCIUM\CHOLECALCIFEROL\MAGNESIUM
     Dosage: UNK, QD
     Route: 065
     Dates: start: 199610
  24. COLLAGEN [Concomitant]
     Active Substance: COLLAGEN
     Dosage: 3000 MILLIGRAM, QD
     Route: 065
     Dates: start: 202012
  25. MELATONIN [Concomitant]
     Active Substance: MELATONIN
     Dosage: 10 MILLIGRAM, QD
     Route: 065
     Dates: start: 201409
  26. METAMUCIL [Concomitant]
     Active Substance: PLANTAGO SEED
     Dosage: UNK, QD
     Route: 065
     Dates: start: 201910
  27. HERBALS\TURMERIC [Concomitant]
     Active Substance: HERBALS\TURMERIC
     Dosage: 500 MILLIGRAM, QD
     Route: 065
     Dates: start: 201910

REACTIONS (14)
  - Gastrointestinal ulcer haemorrhage [Recovered/Resolved]
  - Ventricular fibrillation [Unknown]
  - Heart rate increased [Recovered/Resolved]
  - Angina pectoris [Unknown]
  - Haemoglobin decreased [Unknown]
  - Blood pressure increased [Recovered/Resolved]
  - Biopsy mucosa abnormal [Unknown]
  - COVID-19 [Recovered/Resolved]
  - Breakthrough COVID-19 [Unknown]
  - Infusion related reaction [Unknown]
  - Illness [Unknown]
  - Asthenia [Recovered/Resolved]
  - Product dose omission issue [Unknown]
  - Product availability issue [Unknown]

NARRATIVE: CASE EVENT DATE: 20211201
